FAERS Safety Report 9416372 (Version 3)
Quarter: 2013Q3

REPORT INFORMATION
  Report Type: Spontaneous
  Country: US (occurrence: US)
  Receive Date: 20130724
  Receipt Date: 20130903
  Transmission Date: 20140515
  Serious: No
  Sender: FDA-Public Use
  Company Number: US-PFIZER INC-2013212340

PATIENT
  Sex: Female

DRUGS (3)
  1. PREMARIN [Suspect]
     Dosage: UNK
     Route: 067
  2. PREMARIN [Suspect]
     Dosage: UNK
  3. PREMARIN [Suspect]

REACTIONS (2)
  - Product quality issue [Unknown]
  - Drug ineffective [Unknown]
